FAERS Safety Report 20685790 (Version 2)
Quarter: 2022Q3

REPORT INFORMATION
  Report Type: Report from Study
  Country: CA (occurrence: CA)
  Receive Date: 20220407
  Receipt Date: 20220727
  Transmission Date: 20221027
  Serious: Yes (Other)
  Sender: FDA-Public Use
  Company Number: CA-JNJFOC-20220401909

PATIENT
  Age: 38 Year
  Sex: Male
  Weight: 128.03 kg

DRUGS (4)
  1. REMICADE [Suspect]
     Active Substance: INFLIXIMAB
     Indication: Hidradenitis
     Dosage: REMICADE GIVEN AT A SLOWER RATE THAT STARTED AT 50CC/HR X 1 HOUR
     Route: 041
     Dates: start: 20190603
  2. BENADRYL [Concomitant]
     Active Substance: DIPHENHYDRAMINE HYDROCHLORIDE
     Indication: Premedication
     Dosage: 25 TO 50 MG
     Route: 048
     Dates: start: 20220331
  3. TYLENOL [Concomitant]
     Active Substance: ACETAMINOPHEN
     Indication: Premedication
     Route: 065
     Dates: start: 20220530
  4. HYDROCORTISONE [Concomitant]
     Active Substance: HYDROCORTISONE
     Indication: Premedication
     Route: 042
     Dates: start: 20220530

REACTIONS (8)
  - Infusion related reaction [Recovered/Resolved]
  - Cough [Recovered/Resolved]
  - Throat tightness [Recovered/Resolved]
  - Vomiting [Recovered/Resolved]
  - Lice infestation [Unknown]
  - Tooth infection [Recovering/Resolving]
  - Tooth extraction [Unknown]
  - Off label use [Unknown]

NARRATIVE: CASE EVENT DATE: 20190603
